FAERS Safety Report 13992666 (Version 2)
Quarter: 2017Q4

REPORT INFORMATION
  Report Type: Spontaneous
  Country: US (occurrence: US)
  Receive Date: 20170920
  Receipt Date: 20171122
  Transmission Date: 20180321
  Serious: No
  Sender: FDA-Public Use
  Company Number: US-JNJFOC-20170817023

PATIENT
  Age: 80 Year
  Sex: Male
  Weight: 70.31 kg

DRUGS (1)
  1. NIZORAL A-D [Suspect]
     Active Substance: KETOCONAZOLE
     Indication: DANDRUFF
     Dosage: DOSE: QUARTER SIZE????FREQUENCY 3 TIMES
     Route: 061
     Dates: start: 20170705, end: 20170712

REACTIONS (3)
  - Drug ineffective [Unknown]
  - Alopecia [Recovering/Resolving]
  - Skin exfoliation [Recovering/Resolving]

NARRATIVE: CASE EVENT DATE: 20170706
